FAERS Safety Report 11811194 (Version 3)
Quarter: 2017Q1

REPORT INFORMATION
  Report Type: Spontaneous
  Country: GB (occurrence: GB)
  Receive Date: 20151208
  Receipt Date: 20170207
  Transmission Date: 20170428
  Serious: Yes (Other)
  Sender: FDA-Public Use
  Company Number: GB-JNJFOC-20151203481

PATIENT
  Sex: Female

DRUGS (1)
  1. SIMPONI [Suspect]
     Active Substance: GOLIMUMAB
     Indication: PRODUCT USED FOR UNKNOWN INDICATION
     Route: 058

REACTIONS (3)
  - Drug dose omission [Unknown]
  - Lower respiratory tract infection [Unknown]
  - Device use issue [Unknown]

NARRATIVE: CASE EVENT DATE: 2015
